FAERS Safety Report 6948288-7 (Version None)
Quarter: 2010Q3

REPORT INFORMATION
  Report Type: 
  Country: None (occurrence: None)
  Receive Date: 20100828
  Receipt Date: 20091026
  Transmission Date: 20110219
  Serious: No
  Sender: FDA-Public Use
  Company Number: US-ABBOTT-09P-163-0605746-00

PATIENT
  Sex: Female

DRUGS (7)
  1. NIASPAN [Suspect]
     Indication: BLOOD CHOLESTEROL INCREASED
     Route: 048
     Dates: start: 20090101
  2. ARTHOBIOFLEX [Concomitant]
     Indication: PRODUCT USED FOR UNKNOWN INDICATION
  3. CALTRATE D [Concomitant]
     Indication: PRODUCT USED FOR UNKNOWN INDICATION
  4. CERVICAL CANCER VITAMINS [Concomitant]
     Indication: CERVIX CARCINOMA
  5. VITAMIN TAB [Concomitant]
     Indication: PRODUCT USED FOR UNKNOWN INDICATION
     Dosage: X3
  6. CHLOR-TRIMETON [Concomitant]
     Indication: SEASONAL ALLERGY
     Dosage: DAILY
  7. ASPIRIN [Concomitant]
     Indication: PRODUCT USED FOR UNKNOWN INDICATION
     Dosage: DAILY PRIOR TO NIASPAN COATED THERAY
     Route: 048

REACTIONS (4)
  - BONE MARROW OEDEMA [None]
  - EAR PAIN [None]
  - ILL-DEFINED DISORDER [None]
  - OSTEITIS [None]
